FAERS Safety Report 18115457 (Version 2)
Quarter: 2020Q3

REPORT INFORMATION
  Report Type: Report from Study
  Country: US (occurrence: US)
  Receive Date: 20200805
  Receipt Date: 20200826
  Transmission Date: 20201103
  Serious: No
  Sender: FDA-Public Use
  Company Number: US-SHIRE-US202025269

PATIENT
  Age: 60 Year
  Sex: Female
  Weight: 43.4 kg

DRUGS (8)
  1. GATTEX [Suspect]
     Active Substance: TEDUGLUTIDE\WATER
     Indication: SHORT-BOWEL SYNDROME
     Dosage: 0.215 (UNIT UNKNOWN), 1X/DAY:QD
     Route: 058
     Dates: start: 20180907, end: 20200703
  2. GATTEX [Suspect]
     Active Substance: TEDUGLUTIDE\WATER
     Dosage: 2.17 MILLIGRAM, 1X/DAY:QD
     Route: 050
  3. GATTEX [Suspect]
     Active Substance: TEDUGLUTIDE\WATER
     Indication: SHORT-BOWEL SYNDROME
     Dosage: 0.215 (UNIT UNKNOWN), 1X/DAY:QD
     Route: 058
     Dates: start: 20180907, end: 20200703
  4. GATTEX [Suspect]
     Active Substance: TEDUGLUTIDE\WATER
     Indication: SHORT-BOWEL SYNDROME
     Dosage: 0.215 (UNIT UNKNOWN), 1X/DAY:QD
     Route: 058
     Dates: start: 20180907, end: 20200703
  5. GATTEX [Suspect]
     Active Substance: TEDUGLUTIDE\WATER
     Indication: SHORT-BOWEL SYNDROME
     Dosage: 0.215 (UNIT UNKNOWN), 1X/DAY:QD
     Route: 058
     Dates: start: 20180907, end: 20200703
  6. GATTEX [Suspect]
     Active Substance: TEDUGLUTIDE\WATER
     Dosage: 2.17 MILLIGRAM, 1X/DAY:QD
     Route: 050
  7. GATTEX [Suspect]
     Active Substance: TEDUGLUTIDE\WATER
     Dosage: 2.17 MILLIGRAM, 1X/DAY:QD
     Route: 050
  8. GATTEX [Suspect]
     Active Substance: TEDUGLUTIDE\WATER
     Dosage: 2.17 MILLIGRAM, 1X/DAY:QD
     Route: 050

REACTIONS (2)
  - Needle issue [Not Recovered/Not Resolved]
  - Pyrexia [Not Recovered/Not Resolved]

NARRATIVE: CASE EVENT DATE: 20200703
